FAERS Safety Report 18586011 (Version 1)
Quarter: 2020Q4

REPORT INFORMATION
  Report Type: Spontaneous
  Country: US (occurrence: US)
  Receive Date: 20201207
  Receipt Date: 20201207
  Transmission Date: 20210114
  Serious: Yes (Hospitalization)
  Sender: FDA-Public Use
  Company Number: US-UPSHER-SMITH LABORATORIES, LLC-2020USL00628

PATIENT
  Age: 71 Year
  Sex: Female
  Weight: 68.03 kg

DRUGS (6)
  1. PACERONE [Suspect]
     Active Substance: AMIODARONE HYDROCHLORIDE
     Dosage: 400 MG, 2X/DAY FOR 7 DAYS
     Route: 048
     Dates: start: 20201122
  2. ATORVASTATIN [Concomitant]
     Active Substance: ATORVASTATIN
     Dosage: 40 MG, 1X/DAY
  3. PACERONE [Suspect]
     Active Substance: AMIODARONE HYDROCHLORIDE
     Indication: VENTRICULAR ARRHYTHMIA
     Dosage: ^ONE OR TWO^
     Route: 048
     Dates: start: 202011, end: 202011
  4. BISOPROLOL [Concomitant]
     Active Substance: BISOPROLOL
     Dosage: 5 MG, 2X/DAY
  5. APIXABAN [Suspect]
     Active Substance: APIXABAN
     Dosage: 5 MG, 2X/DAY
     Dates: end: 2020
  6. BUMETANIDE. [Concomitant]
     Active Substance: BUMETANIDE
     Dosage: 1 MG, 2X/DAY

REACTIONS (5)
  - Atrial fibrillation [Recovered/Resolved]
  - Blood sodium decreased [Recovering/Resolving]
  - Blood potassium abnormal [Recovering/Resolving]
  - Blood calcium abnormal [Recovering/Resolving]
  - Mental impairment [Recovering/Resolving]

NARRATIVE: CASE EVENT DATE: 202011
